FAERS Safety Report 7724543-8 (Version None)
Quarter: 2011Q3

REPORT INFORMATION
  Report Type: 
  Country: None (occurrence: None)
  Receive Date: 20110901
  Receipt Date: 20110822
  Transmission Date: 20111222
  Serious: Yes (Hospitalization, Disabling, Other)
  Sender: FDA-Public Use
  Company Number: US-MERCK-1102USA00334

PATIENT
  Age: 56 Year
  Sex: Female
  Weight: 88 kg

DRUGS (9)
  1. VITAMINS (UNSPECIFIED) [Concomitant]
     Route: 065
     Dates: start: 19950101
  2. CLARITIN [Concomitant]
     Indication: SEASONAL ALLERGY
     Route: 048
  3. ALENDRONATE SODIUM [Suspect]
     Indication: OSTEOPENIA
     Route: 048
     Dates: start: 20080325, end: 20100401
  4. CALCIUM (UNSPECIFIED) AND VITAMIN D (UNSPECIFIED) [Concomitant]
     Route: 065
     Dates: start: 19950101
  5. BONIVA [Suspect]
     Route: 048
     Dates: start: 20051216, end: 20060901
  6. FOSAMAX [Suspect]
     Route: 048
     Dates: start: 20050110, end: 20080301
  7. ALLEGRA [Concomitant]
     Indication: SEASONAL ALLERGY
     Route: 065
  8. ZYRTEC [Concomitant]
     Indication: SEASONAL ALLERGY
     Route: 065
  9. FOSAMAX [Suspect]
     Indication: OSTEOPENIA
     Route: 048
     Dates: start: 20001120, end: 20020101

REACTIONS (13)
  - IMPAIRED HEALING [None]
  - OSTEOPOROSIS [None]
  - TOOTH DISORDER [None]
  - LOW TURNOVER OSTEOPATHY [None]
  - BURSITIS [None]
  - FEMUR FRACTURE [None]
  - ANKLE FRACTURE [None]
  - STRESS FRACTURE [None]
  - ARTHRALGIA [None]
  - MYALGIA [None]
  - FRACTURE NONUNION [None]
  - STAPHYLOCOCCAL INFECTION [None]
  - SUPRAVENTRICULAR TACHYCARDIA [None]
